FAERS Safety Report 23766220 (Version 1)
Quarter: 2024Q2

REPORT INFORMATION
  Report Type: Spontaneous
  Country: JP (occurrence: JP)
  Receive Date: 20240422
  Receipt Date: 20240422
  Transmission Date: 20240715
  Serious: Yes (Hospitalization, Other)
  Sender: FDA-Public Use
  Company Number: JP-GLAXOSMITHKLINE-JP2024JPN048303

PATIENT

DRUGS (1)
  1. FLOLAN [Suspect]
     Active Substance: EPOPROSTENOL SODIUM
     Indication: Pulmonary hypertension
     Dosage: UNK, REDUCED DOSE

REACTIONS (6)
  - Right ventricular failure [Unknown]
  - Hyperthyroidism [Unknown]
  - Polycystic liver disease [Unknown]
  - Graves^ disease [Unknown]
  - Neck mass [Unknown]
  - Goitre [Unknown]
